FAERS Safety Report 18155156 (Version 4)
Quarter: 2021Q3

REPORT INFORMATION
  Report Type: Spontaneous
  Country: US (occurrence: US)
  Receive Date: 20200817
  Receipt Date: 20210903
  Transmission Date: 20211014
  Serious: No
  Sender: FDA-Public Use
  Company Number: US-ALLERGAN-2010463US

PATIENT
  Age: 64 Year
  Sex: Male
  Weight: 93.88 kg

DRUGS (5)
  1. MICARDIS [Concomitant]
     Active Substance: TELMISARTAN
     Indication: HYPERTENSION
     Dosage: UNK, QD
  2. ANDRODERM [Suspect]
     Active Substance: TESTOSTERONE
     Indication: BLOOD TESTOSTERONE DECREASED
     Dosage: 1 DF, QD
     Route: 062
  3. HTZ [Concomitant]
     Active Substance: HYDROCHLOROTHIAZIDE
     Indication: HYPERTENSION
     Dosage: UNK, QD
  4. ANDRODERM [Suspect]
     Active Substance: TESTOSTERONE
     Indication: BLOOD TESTOSTERONE DECREASED
     Dosage: 4 MG, QD
     Route: 062
     Dates: start: 20200115
  5. PRAVASTATIN. [Concomitant]
     Active Substance: PRAVASTATIN
     Indication: BLOOD CHOLESTEROL
     Dosage: 10 MG, QHS

REACTIONS (7)
  - Application site erythema [Recovered/Resolved]
  - Rash [Recovered/Resolved]
  - Application site pruritus [Recovered/Resolved]
  - Wrong technique in product usage process [Unknown]
  - Product adhesion issue [Unknown]
  - Application site rash [Recovered/Resolved]
  - Product quality issue [Unknown]

NARRATIVE: CASE EVENT DATE: 202002
